FAERS Safety Report 6272348-X (Version None)
Quarter: 2009Q3

REPORT INFORMATION
  Report Type: 
  Country: None (occurrence: None)
  Receive Date: 20090713
  Receipt Date: 20080904
  Transmission Date: 20100115
  Serious: No
  Sender: FDA-Public Use
  Company Number: 2008BM000193

PATIENT
  Age: 33 Year
  Sex: Female
  Weight: 67.7 kg

DRUGS (5)
  1. KUVAN [Suspect]
     Indication: PHENYLKETONURIA
     Dosage: 1400 MG; QD; PO
     Route: 048
     Dates: start: 20080108
  2. ZOFRAN /00955301/ (CON.) [Concomitant]
  3. OMEPRAZOLE (CON.) [Concomitant]
  4. PRENATAL VITAMINS /02014401/ (CON.) [Concomitant]
  5. COMPAZINE /00013302/ (CON.) [Concomitant]

REACTIONS (1)
  - DRUG EXPOSURE DURING PREGNANCY [None]
